FAERS Safety Report 5607295-7 (Version None)
Quarter: 2008Q1

REPORT INFORMATION
  Report Type: 
  Country: None (occurrence: None)
  Receive Date: 20080130
  Receipt Date: 20080123
  Transmission Date: 20080703
  Serious: Yes (Hospitalization, Other)
  Sender: FDA-Public Use
  Company Number: GB-JNJFOC-20080105929

PATIENT
  Sex: Female

DRUGS (10)
  1. REMICADE [Suspect]
     Indication: RHEUMATOID ARTHRITIS
     Route: 042
  2. SULFASALAZINE [Concomitant]
  3. METHOTREXATE [Concomitant]
  4. CO-CODAMOL [Concomitant]
  5. FOLIC ACID [Concomitant]
  6. HYDROXYCHLOROQUINE [Concomitant]
  7. IRON [Concomitant]
  8. MOTILIUM [Concomitant]
  9. TRAMADOL HCL [Concomitant]
  10. ARTHROTEC [Concomitant]

REACTIONS (1)
  - LUNG NEOPLASM [None]
